FAERS Safety Report 9590948 (Version 2)
Quarter: 2013Q4

REPORT INFORMATION
  Report Type: Spontaneous
  Country: US (occurrence: US)
  Receive Date: 20131003
  Receipt Date: 20131003
  Transmission Date: 20140711
  Serious: No
  Sender: FDA-Public Use
  Company Number: US-AMGEN-USASP2012078645

PATIENT
  Age: 49 Year
  Sex: Female

DRUGS (2)
  1. ENBREL [Suspect]
     Indication: PSORIATIC ARTHROPATHY
     Dosage: 50 MG, ONE EVERY WEEK
     Route: 058
     Dates: start: 20120728, end: 20120928
  2. ENBREL [Suspect]
     Indication: PSORIASIS

REACTIONS (2)
  - Influenza like illness [Recovered/Resolved]
  - Drug ineffective [Unknown]
